FAERS Safety Report 15278400 (Version 2)
Quarter: 2018Q3

REPORT INFORMATION
  Report Type: Spontaneous
  Country: NO (occurrence: NO)
  Receive Date: 20180814
  Receipt Date: 20180823
  Transmission Date: 20181010
  Serious: Yes (Hospitalization, Other)
  Sender: FDA-Public Use
  Company Number: PHHY2018NO025085

PATIENT
  Age: 18 Year
  Sex: Male

DRUGS (11)
  1. PACLITAXEL. [Concomitant]
     Active Substance: PACLITAXEL
     Indication: TESTIS CANCER
     Dosage: THREE COURSES
     Route: 065
  2. IMATINIB [Suspect]
     Active Substance: IMATINIB
     Indication: PNEUMONITIS
     Dosage: 300 MG, UNK
     Route: 045
  3. BLEOMYCIN SULFATE [Suspect]
     Active Substance: BLEOMYCIN SULFATE
     Indication: TESTIS CANCER
     Dosage: 2 COURSES OF UNDER BEP REGIMEN
     Route: 065
  4. CARBOPLATIN. [Concomitant]
     Active Substance: CARBOPLATIN
     Indication: TESTIS CANCER
     Dosage: TWO COURSES OF HIGH?DOSE CHEMOTHERAPY
     Route: 065
  5. CISPLATIN. [Concomitant]
     Active Substance: CISPLATIN
     Dosage: 3 COURSES UNDER TIP
     Route: 065
  6. IMATINIB [Suspect]
     Active Substance: IMATINIB
     Indication: ACUTE INTERSTITIAL PNEUMONITIS
     Dosage: 100 MG, UNK
     Route: 045
  7. PREDNISOLONE. [Suspect]
     Active Substance: PREDNISOLONE
     Indication: PRODUCT USED FOR UNKNOWN INDICATION
     Dosage: HIGH?DOSE
     Route: 065
  8. IMATINIB [Suspect]
     Active Substance: IMATINIB
     Indication: SYSTEMIC SCLERODERMA
  9. CISPLATIN. [Concomitant]
     Active Substance: CISPLATIN
     Indication: TESTIS CANCER
     Dosage: 2 COURSES OF UNDER BEP REGIMEN
     Route: 065
  10. ETOPOSIDE. [Concomitant]
     Active Substance: ETOPOSIDE
     Indication: TESTIS CANCER
     Dosage: 2 COURSES OF UNDER BEP REGIMEN TWO COURSES OF HIGH?DOSE
     Route: 065
  11. IFOSFAMIDE. [Concomitant]
     Active Substance: IFOSFAMIDE
     Indication: TESTIS CANCER
     Dosage: THREE COURSES
     Route: 065

REACTIONS (6)
  - Off label use [Recovered/Resolved]
  - Stenotrophomonas infection [Recovering/Resolving]
  - Therapeutic response unexpected [Unknown]
  - Product use in unapproved indication [Unknown]
  - Neutropenia [Recovered/Resolved]
  - Pneumonitis [Recovering/Resolving]
